FAERS Safety Report 14473950 (Version 1)
Quarter: 2018Q1

REPORT INFORMATION
  Report Type: Spontaneous
  Country: IE (occurrence: IE)
  Receive Date: 20180201
  Receipt Date: 20180201
  Transmission Date: 20180509
  Serious: Yes (Other)
  Sender: FDA-Public Use
  Company Number: IE-GUERBET-IE-20180003

PATIENT
  Age: 44 Year
  Sex: Female

DRUGS (1)
  1. OPTIRAY 350 [Suspect]
     Active Substance: IOVERSOL
     Indication: COMPUTERISED TOMOGRAM THORAX
     Route: 042
     Dates: start: 20171116, end: 20171116

REACTIONS (5)
  - Oral pruritus [Recovered/Resolved]
  - Sneezing [Recovered/Resolved]
  - Anaphylactic reaction [Recovered/Resolved]
  - Eye pruritus [Recovered/Resolved]
  - Dizziness [Recovered/Resolved]

NARRATIVE: CASE EVENT DATE: 20171116
